FAERS Safety Report 4770854-8 (Version None)
Quarter: 2005Q3

REPORT INFORMATION
  Report Type: 
  Country: None (occurrence: None)
  Receive Date: 20050915
  Receipt Date: 20050909
  Transmission Date: 20060218
  Serious: Yes (Other)
  Sender: FDA-Public Use
  Company Number: DE-GLAXOSMITHKLINE-D0047462A

PATIENT

DRUGS (1)
  1. SEROXAT [Suspect]
     Route: 065

REACTIONS (1)
  - MACULAR OEDEMA [None]
